FAERS Safety Report 15006976 (Version 2)
Quarter: 2018Q2

REPORT INFORMATION
  Report Type: Spontaneous
  Country: JP (occurrence: JP)
  Receive Date: 20180613
  Receipt Date: 20180628
  Transmission Date: 20180711
  Serious: Yes (Hospitalization)
  Sender: FDA-Public Use
  Company Number: JP-EAGLE PHARMACEUTICALS, INC.-JP-2018EAG000047

PATIENT
  Age: 79 Year
  Sex: Male

DRUGS (2)
  1. DOCETAXEL. [Suspect]
     Active Substance: DOCETAXEL
     Indication: BONE MARROW FAILURE
  2. DOCETAXEL. [Suspect]
     Active Substance: DOCETAXEL
     Indication: PROSTATE CANCER RECURRENT
     Dosage: UNK
     Route: 065

REACTIONS (1)
  - Intestinal ischaemia [Unknown]
